FAERS Safety Report 5331869-4 (Version None)
Quarter: 2007Q2

REPORT INFORMATION
  Report Type: 
  Country: None (occurrence: None)
  Receive Date: 20070523
  Receipt Date: 20070516
  Transmission Date: 20071010
  Serious: Yes (Death)
  Sender: FDA-Public Use
  Company Number: CA-BAYER-200712775GDS

PATIENT
  Sex: Female

DRUGS (4)
  1. NEXAVAR [Suspect]
     Indication: RENAL CELL CARCINOMA STAGE UNSPECIFIED
     Route: 048
     Dates: start: 20061001
  2. ADALAT [Concomitant]
     Indication: HYPERTENSION
     Route: 065
  3. TYLENOL [Concomitant]
     Indication: PAIN
     Route: 065
  4. CODEINE SUL TAB [Concomitant]
     Indication: PAIN
     Route: 065

REACTIONS (1)
  - METASTATIC RENAL CELL CARCINOMA [None]
